FAERS Safety Report 6769539-8 (Version None)
Quarter: 2010Q2

REPORT INFORMATION
  Report Type: 
  Country: None (occurrence: None)
  Receive Date: 20100615
  Receipt Date: 20100601
  Transmission Date: 20101027
  Serious: Yes (Hospitalization)
  Sender: FDA-Public Use
  Company Number: PHHY2010DE24858

PATIENT
  Sex: Female

DRUGS (1)
  1. EXTAVIA [Suspect]
     Indication: MULTIPLE SCLEROSIS
     Dosage: 250 UG, QOD
     Route: 058
     Dates: start: 20090617

REACTIONS (4)
  - BENIGN BREAST NEOPLASM [None]
  - BREAST CALCIFICATIONS [None]
  - BREAST DISORDER [None]
  - BREAST OPERATION [None]
